FAERS Safety Report 26010496 (Version 1)
Quarter: 2025Q4

REPORT INFORMATION
  Report Type: Spontaneous
  Country: EU (occurrence: EU)
  Receive Date: 20251107
  Receipt Date: 20251107
  Transmission Date: 20260118
  Serious: Yes (Disabling)
  Sender: TEVA
  Company Number: EU-DCGMA-25205923

PATIENT
  Age: 67 Year
  Sex: Female

DRUGS (2)
  1. SPIRONOLACTONE [Suspect]
     Active Substance: SPIRONOLACTONE
     Indication: Hepatic cirrhosis
     Route: 048
     Dates: start: 202211
  2. LACTULOSE [Concomitant]
     Active Substance: LACTULOSE
     Indication: Hepatic cirrhosis
     Route: 048
     Dates: start: 202211

REACTIONS (1)
  - Fat tissue increased [Not Recovered/Not Resolved]

NARRATIVE: CASE EVENT DATE: 20240701
